FAERS Safety Report 5764172-9 (Version None)
Quarter: 2008Q2

REPORT INFORMATION
  Report Type: 
  Country: None (occurrence: None)
  Receive Date: 20080605
  Receipt Date: 20080523
  Transmission Date: 20081010
  Serious: Yes (Hospitalization)
  Sender: FDA-Public Use
  Company Number: 080519-0000439

PATIENT
  Age: 4 Year
  Sex: Female

DRUGS (7)
  1. ELSPAR [Suspect]
     Indication: ACUTE LYMPHOCYTIC LEUKAEMIA
  2. VINCRISTINE [Suspect]
     Indication: ACUTE LYMPHOCYTIC LEUKAEMIA
  3. PREDNISONE TAB [Suspect]
     Indication: ACUTE LYMPHOCYTIC LEUKAEMIA
  4. METHOTREXATE [Suspect]
     Indication: ACUTE LYMPHOCYTIC LEUKAEMIA
  5. DAUNOMYCIN [Suspect]
     Indication: ACUTE LYMPHOCYTIC LEUKAEMIA
  6. CYCLOPHOSPHAMIDE [Suspect]
     Indication: ACUTE LYMPHOCYTIC LEUKAEMIA
  7. CYTARABINE [Suspect]
     Indication: ACUTE LYMPHOCYTIC LEUKAEMIA

REACTIONS (7)
  - ACUTE LYMPHOCYTIC LEUKAEMIA RECURRENT [None]
  - BONE MARROW TRANSPLANT [None]
  - CHRONIC GRAFT VERSUS HOST DISEASE [None]
  - NO THERAPEUTIC RESPONSE [None]
  - POST PROCEDURAL COMPLICATION [None]
  - PULMONARY VENO-OCCLUSIVE DISEASE [None]
  - STOMATITIS [None]
